FAERS Safety Report 25140607 (Version 1)
Quarter: 2025Q1

REPORT INFORMATION
  Report Type: Spontaneous
  Country: US (occurrence: US)
  Receive Date: 20250331
  Receipt Date: 20250331
  Transmission Date: 20250409
  Serious: Yes (Other)
  Sender: ABBVIE
  Company Number: US-ABBVIE-6201869

PATIENT
  Age: 68 Year
  Sex: Female
  Weight: 94.347 kg

DRUGS (5)
  1. SKYRIZI [Suspect]
     Active Substance: RISANKIZUMAB-RZAA
     Indication: Crohn^s disease
     Route: 058
     Dates: start: 20250321
  2. SKYRIZI [Suspect]
     Active Substance: RISANKIZUMAB-RZAA
     Indication: Crohn^s disease
     Route: 042
     Dates: start: 20241226
  3. SKYRIZI [Suspect]
     Active Substance: RISANKIZUMAB-RZAA
     Indication: Crohn^s disease
     Route: 042
     Dates: start: 20250123, end: 20250123
  4. SKYRIZI [Suspect]
     Active Substance: RISANKIZUMAB-RZAA
     Indication: Crohn^s disease
     Route: 042
     Dates: start: 20250219, end: 20250219
  5. MESALAMINE [Concomitant]
     Active Substance: MESALAMINE
     Indication: Crohn^s disease

REACTIONS (3)
  - Macular oedema [Recovering/Resolving]
  - Diplopia [Recovering/Resolving]
  - Epiretinal membrane [Recovering/Resolving]

NARRATIVE: CASE EVENT DATE: 20250301
